FAERS Safety Report 18958535 (Version 2)
Quarter: 2021Q2

REPORT INFORMATION
  Report Type: Spontaneous
  Country: US (occurrence: US)
  Receive Date: 20210302
  Receipt Date: 20210510
  Transmission Date: 20210717
  Serious: Yes (Hospitalization)
  Sender: FDA-Public Use
  Company Number: US-CELGENEUS-USA-20210207335

PATIENT
  Age: 62 Year
  Sex: Female

DRUGS (4)
  1. ONUREG [Suspect]
     Active Substance: AZACITIDINE
     Indication: LEUKAEMIA
  2. ONUREG [Suspect]
     Active Substance: AZACITIDINE
     Indication: OVARIAN CANCER
     Route: 048
     Dates: start: 20210201, end: 20210401
  3. PROCHLORPERAZINE. [Concomitant]
     Active Substance: PROCHLORPERAZINE
     Indication: PRODUCT USED FOR UNKNOWN INDICATION
     Route: 065
  4. ONDANSETRON [Concomitant]
     Active Substance: ONDANSETRON
     Indication: PRODUCT USED FOR UNKNOWN INDICATION
     Route: 065

REACTIONS (2)
  - Diarrhoea [Unknown]
  - Vomiting [Unknown]

NARRATIVE: CASE EVENT DATE: 20210223
